FAERS Safety Report 9425986 (Version 3)
Quarter: 2013Q3

REPORT INFORMATION
  Report Type: Spontaneous
  Country: SV (occurrence: SV)
  Receive Date: 20130730
  Receipt Date: 20130813
  Transmission Date: 20140515
  Serious: Yes (Death, Life-Threatening, Hospitalization, Other)
  Sender: FDA-Public Use
  Company Number: SV-ASTRAZENECA-2013SE57092

PATIENT
  Age: 50 Year
  Sex: Male
  Weight: 70 kg

DRUGS (12)
  1. BRILINTA [Suspect]
     Indication: ACUTE MYOCARDIAL INFARCTION
     Route: 048
     Dates: start: 20130718, end: 20130718
  2. BRILINTA [Suspect]
     Indication: ACUTE CORONARY SYNDROME
     Route: 048
     Dates: start: 20130718, end: 20130718
  3. BRILINTA [Suspect]
     Indication: CORONARY ARTERIAL STENT INSERTION
     Route: 048
     Dates: start: 20130718, end: 20130718
  4. BRILINTA [Suspect]
     Indication: ACUTE MYOCARDIAL INFARCTION
     Route: 048
     Dates: start: 20130719, end: 20130720
  5. BRILINTA [Suspect]
     Indication: ACUTE CORONARY SYNDROME
     Route: 048
     Dates: start: 20130719, end: 20130720
  6. BRILINTA [Suspect]
     Indication: CORONARY ARTERIAL STENT INSERTION
     Route: 048
     Dates: start: 20130719, end: 20130720
  7. ASPIRIN [Concomitant]
     Indication: ANTICOAGULANT THERAPY
     Route: 048
     Dates: start: 20130718, end: 20130718
  8. ASPIRIN [Concomitant]
     Indication: ANTICOAGULANT THERAPY
     Route: 048
     Dates: start: 20130719, end: 20130728
  9. AGGRASTAT [Concomitant]
     Dates: start: 20130718, end: 20130719
  10. CLEXANE [Concomitant]
     Indication: ACUTE CORONARY SYNDROME
     Dates: start: 20130718, end: 20130720
  11. CONCOR [Concomitant]
     Dates: start: 20130718, end: 20130720
  12. HEPARIN [Concomitant]

REACTIONS (3)
  - Brain death [Fatal]
  - Cerebellar haemorrhage [Fatal]
  - Carotid artery occlusion [Unknown]
